FAERS Safety Report 9702343 (Version 1)
Quarter: 2013Q4

REPORT INFORMATION
  Report Type: Spontaneous
  Country: US (occurrence: None)
  Receive Date: 20131119
  Receipt Date: 20131119
  Transmission Date: 20140711
  Serious: Yes (Life-Threatening, Hospitalization)
  Sender: FDA-Public Use
  Company Number: 2013P1020868

PATIENT
  Age: 7 Year
  Sex: Male

DRUGS (1)
  1. CLONIDINE [Suspect]
     Route: 048

REACTIONS (10)
  - Unresponsive to stimuli [None]
  - Apnoea [None]
  - Lethargy [None]
  - Miosis [None]
  - Respiratory rate decreased [None]
  - Hypertension [None]
  - Infection [None]
  - Product compounding quality issue [None]
  - Incorrect dose administered [None]
  - Accidental overdose [None]
